FAERS Safety Report 10153762 (Version 2)
Quarter: 2014Q2

REPORT INFORMATION
  Report Type: Not Available
  Country: US (occurrence: US)
  Receive Date: 20140506
  Receipt Date: 20140606
  Transmission Date: 20141212
  Serious: Yes (Other)
  Sender: FDA-Public Use
  Company Number: US-LUPIN PHARMACEUTICALS INC.-E2B_00001978

PATIENT
  Age: 69 Year
  Sex: Female
  Weight: 54.48 kg

DRUGS (2)
  1. MELOXICAM TABLETS USP 7.5 MG [Suspect]
     Indication: PLANTAR FASCIITIS
     Dates: start: 20140210, end: 201403
  2. NEXIUM [Concomitant]
     Indication: GASTROOESOPHAGEAL REFLUX DISEASE
     Route: 065

REACTIONS (1)
  - Diverticulitis [Recovered/Resolved]
